FAERS Safety Report 4586073-4 (Version None)
Quarter: 2005Q1

REPORT INFORMATION
  Report Type: 
  Country: None (occurrence: None)
  Receive Date: 20050125
  Receipt Date: 20040823
  Transmission Date: 20050727
  Serious: No
  Sender: FDA-Public Use
  Company Number: US_0409105148

PATIENT
  Age: 89 Year
  Sex: Male
  Weight: 64 kg

DRUGS (5)
  1. FORTEO [Suspect]
     Indication: OSTEOPOROSIS
     Dosage: 20 UG DAY
     Dates: start: 20031223, end: 20040715
  2. COUMADIN [Concomitant]
  3. MIRALAX [Concomitant]
  4. ATENOLOL [Concomitant]
  5. MAVIK [Concomitant]

REACTIONS (1)
  - HAEMATURIA [None]
